FAERS Safety Report 6653982-1 (Version None)
Quarter: 2010Q1

REPORT INFORMATION
  Report Type: 
  Country: None (occurrence: None)
  Receive Date: 20100326
  Receipt Date: 20100322
  Transmission Date: 20100710
  Serious: Yes (Other)
  Sender: FDA-Public Use
  Company Number: GB-TEVA-228500ISR

PATIENT
  Age: 47 Year
  Sex: Female

DRUGS (1)
  1. LEVOTHYROXINE SODIUM [Suspect]

REACTIONS (6)
  - ABNORMAL BEHAVIOUR [None]
  - AGITATION [None]
  - BASEDOW'S DISEASE [None]
  - HALLUCINATIONS, MIXED [None]
  - NEUROLOGICAL SYMPTOM [None]
  - PSYCHOMOTOR HYPERACTIVITY [None]
